FAERS Safety Report 26024066 (Version 1)
Quarter: 2025Q4

REPORT INFORMATION
  Report Type: Spontaneous
  Country: CN (occurrence: CN)
  Receive Date: 20251111
  Receipt Date: 20251111
  Transmission Date: 20260118
  Serious: Yes (Hospitalization, Other)
  Sender: PHARMOBEDIENT CONSULTING, LLC
  Company Number: CN-Pharmobedient-000452

PATIENT
  Age: 83 Year
  Sex: Male

DRUGS (1)
  1. FLUCONAZOLE [Suspect]
     Active Substance: FLUCONAZOLE
     Indication: Candida infection
     Dosage: FOLLOWED BY A MAINTENANCE DOSE OF 400 MG

REACTIONS (4)
  - Hyperkalaemia [Recovered/Resolved]
  - Atrioventricular block [Unknown]
  - Electrocardiogram QT prolonged [Unknown]
  - Blood lactic acid increased [Recovering/Resolving]
